FAERS Safety Report 5009722-5 (Version None)
Quarter: 2006Q2

REPORT INFORMATION
  Report Type: 
  Country: None (occurrence: None)
  Receive Date: 20060522
  Receipt Date: 20060510
  Transmission Date: 20061013
  Serious: Yes (Hospitalization)
  Sender: FDA-Public Use
  Company Number: 2006040033

PATIENT
  Age: 27 Year
  Sex: Female
  Weight: 107.5025 kg

DRUGS (4)
  1. FELBATOL [Suspect]
     Indication: CONVULSION
     Dosage: 900MG BID, ORAL
     Route: 048
     Dates: start: 20060308, end: 20060421
  2. LAMOTRIGINE [Concomitant]
  3. LEVETIRACETAM [Concomitant]
  4. CYANOCOBALAMIN [Concomitant]

REACTIONS (3)
  - ANTIBODY TEST POSITIVE [None]
  - HEPATIC STEATOSIS [None]
  - HEPATITIS CHOLESTATIC [None]
